FAERS Safety Report 9220128 (Version 1)
Quarter: 2013Q2

REPORT INFORMATION
  Report Type: Spontaneous
  Country: US (occurrence: None)
  Receive Date: 20130408
  Receipt Date: 20130408
  Transmission Date: 20140414
  Serious: Yes (Hospitalization)
  Sender: FDA-Public Use
  Company Number: None

PATIENT
  Age: 25 Year
  Sex: Female
  Weight: 71.22 kg

DRUGS (3)
  1. SULFAMETHOXAZOLE/TRIMETHOPRIM [Suspect]
     Indication: PHARYNGITIS
     Dates: start: 20130105, end: 20130116
  2. QUINAPRIL [Concomitant]
  3. GLIPIZIDE XL [Concomitant]

REACTIONS (3)
  - Hypersensitivity [None]
  - Stevens-Johnson syndrome [None]
  - Swelling face [None]
